FAERS Safety Report 4353723-7 (Version None)
Quarter: 2004Q2

REPORT INFORMATION
  Report Type: 
  Country: None (occurrence: None)
  Receive Date: 20040430
  Receipt Date: 20040106
  Transmission Date: 20050107
  Serious: No
  Sender: FDA-Public Use
  Company Number: 203981

PATIENT
  Age: 45 Year
  Sex: Female
  Weight: 76.8 kg

DRUGS (7)
  1. XOLAIR [Suspect]
     Indication: ASTHMA
     Dosage: 375 MG, Q2W, SUBCUTANEOUS
     Route: 058
     Dates: start: 20031022
  2. ACCOLATE [Concomitant]
  3. PREVACID [Concomitant]
  4. ADVAIR DISKUS [Concomitant]
  5. FOSAMAX [Concomitant]
  6. VALIUM [Concomitant]
  7. ANTIVERT (UNITED STATES) (MECLIZINE HYDROCHLORIDE) [Concomitant]

REACTIONS (2)
  - DRY MOUTH [None]
  - HYPERHIDROSIS [None]
